FAERS Safety Report 24135989 (Version 1)
Quarter: 2024Q3

REPORT INFORMATION
  Report Type: Spontaneous
  Country: CO (occurrence: CO)
  Receive Date: 20240725
  Receipt Date: 20240725
  Transmission Date: 20241016
  Serious: Yes (Hospitalization, Other)
  Sender: ROCHE
  Company Number: CO-ROCHE-10000030850

PATIENT
  Age: 41 Year
  Sex: Female
  Weight: 60 kg

DRUGS (1)
  1. RITUXIMAB [Suspect]
     Active Substance: RITUXIMAB
     Indication: Neuromyelitis optica spectrum disorder
     Dosage: DOSE: 2 VIALS OF 500 MG?LAST DOSE: /JAN/2024
     Route: 042
     Dates: start: 201608

REACTIONS (3)
  - Neuromyelitis optica spectrum disorder [Recovered/Resolved]
  - Pneumonia [Recovered/Resolved]
  - Off label use [Unknown]

NARRATIVE: CASE EVENT DATE: 20231201
